FAERS Safety Report 21141766 (Version 9)
Quarter: 2022Q4

REPORT INFORMATION
  Report Type: Spontaneous
  Country: US (occurrence: US)
  Receive Date: 20220728
  Receipt Date: 20221122
  Transmission Date: 20230113
  Serious: No
  Sender: FDA-Public Use
  Company Number: US-PFIZER INC-PV202200031769

PATIENT
  Age: 70 Year
  Sex: Female
  Weight: 45.36 kg

DRUGS (2)
  1. NICOTROL [Suspect]
     Active Substance: NICOTINE
     Indication: Smoking cessation therapy
     Dosage: 6-16 CART/DAY, 6-12 WKS THEN TAPER DOSE OR 6-12 WK TO B/C.
  2. NICOTROL [Suspect]
     Active Substance: NICOTINE
     Indication: Chronic obstructive pulmonary disease

REACTIONS (3)
  - Memory impairment [Unknown]
  - Eye disorder [Unknown]
  - Frustration tolerance decreased [Unknown]
